FAERS Safety Report 11318023 (Version 1)
Quarter: 2015Q3

REPORT INFORMATION
  Report Type: Spontaneous
  Country: US (occurrence: US)
  Receive Date: 20150728
  Receipt Date: 20150728
  Transmission Date: 20151125
  Serious: No
  Sender: FDA-Public Use
  Company Number: US-TAKEDA-2015TUS009691

PATIENT
  Sex: Female

DRUGS (4)
  1. CORTISOL                           /00028601/ [Concomitant]
     Dosage: UNK, QHS
  2. ASACOL [Concomitant]
     Active Substance: MESALAMINE
     Indication: INFLAMMATION
     Dosage: UNK
     Route: 048
  3. CANASA [Concomitant]
     Active Substance: MESALAMINE
     Indication: INFLAMMATION
     Dosage: 100 MG, UNK
     Route: 054
  4. ENTYVIO [Suspect]
     Active Substance: VEDOLIZUMAB
     Indication: COLITIS ULCERATIVE
     Dosage: 300 MG, UNK
     Route: 042
     Dates: start: 20150515

REACTIONS (2)
  - Drug ineffective [Unknown]
  - Diarrhoea [Not Recovered/Not Resolved]
